FAERS Safety Report 7519208-1 (Version None)
Quarter: 2011Q2

REPORT INFORMATION
  Report Type: 
  Country: None (occurrence: None)
  Receive Date: 20110602
  Receipt Date: 20110311
  Transmission Date: 20111010
  Serious: No
  Sender: FDA-Public Use
  Company Number: US-BRISTOL-MYERS SQUIBB COMPANY-15603343

PATIENT
  Age: 64 Year
  Sex: Female
  Weight: 92 kg

DRUGS (7)
  1. NEXIUM [Concomitant]
     Dosage: 1DF=1 TAB.
  2. RANITIDINE [Concomitant]
  3. VERAPAMIL EXTENDED-RELEASE [Concomitant]
  4. MELOXICAM [Concomitant]
  5. DEPAMIDE [Concomitant]
  6. KOMBIGLYZE XR [Suspect]
     Indication: DIABETES MELLITUS
     Dosage: KOMBIGLYZE XR
     Dates: start: 20110215
  7. DIOVAN [Concomitant]

REACTIONS (2)
  - COUGH [None]
  - DYSPNOEA [None]
